FAERS Safety Report 4532455-6 (Version None)
Quarter: 2004Q4

REPORT INFORMATION
  Report Type: 
  Country: None (occurrence: None)
  Receive Date: 20041206
  Receipt Date: 20040921
  Transmission Date: 20050328
  Serious: No
  Sender: FDA-Public Use
  Company Number: USA040978848

PATIENT
  Age: 84 Year
  Sex: Female
  Weight: 63 kg

DRUGS (13)
  1. CYMBALTA [Suspect]
     Indication: MAJOR DEPRESSION
     Dosage: 60 MG DAY
     Dates: start: 20040801
  2. ADVAIR DISKUS 100/50 [Concomitant]
  3. DUONEB [Concomitant]
  4. MONOCYCLINE [Concomitant]
  5. TRAZODONE HCL [Concomitant]
  6. XANAX (ALPRAZOLAM DUM) [Concomitant]
  7. DYAZIDE [Concomitant]
  8. METHADONE HCL [Concomitant]
  9. EFFEXOR [Concomitant]
  10. LEXAPRO [Concomitant]
  11. LEVAQUIN [Concomitant]
  12. PEPCID [Concomitant]
  13. NEXIUM [Concomitant]

REACTIONS (4)
  - BRONCHITIS [None]
  - COUGH [None]
  - HYPERHIDROSIS [None]
  - NAUSEA [None]
